FAERS Safety Report 14174450 (Version 2)
Quarter: 2017Q4

REPORT INFORMATION
  Report Type: Spontaneous
  Country: US (occurrence: US)
  Receive Date: 20171109
  Receipt Date: 20171117
  Transmission Date: 20180321
  Serious: Yes (Death)
  Sender: FDA-Public Use
  Company Number: US-FRESENIUS MEDICAL CARE RENAL THERAPIES GROUP-FMC-1711-001349

PATIENT
  Age: 70 Year
  Sex: Male
  Weight: 84 kg

DRUGS (1)
  1. DELFLEX [Suspect]
     Active Substance: CALCIUM CHLORIDE\DEXTROSE\MAGNESIUM CHLORIDE\SODIUM CHLORIDE\SODIUM LACTATE
     Indication: END STAGE RENAL DISEASE
     Dosage: COMBINATION OF 1.5%, 2.5%, 4.25%, 6 EXCHANGES WITH FILL VOLUME OF 2500 CC AND LAST FILL VOLUME OF 10
     Route: 033

REACTIONS (3)
  - Fungal peritonitis [Fatal]
  - Cardiac arrest [Fatal]
  - Sepsis [Fatal]

NARRATIVE: CASE EVENT DATE: 20171018
